FAERS Safety Report 11103041 (Version 1)
Quarter: 2015Q2

REPORT INFORMATION
  Report Type: Spontaneous
  Country: US (occurrence: US)
  Receive Date: 20150511
  Receipt Date: 20150511
  Transmission Date: 20150821
  Serious: No
  Sender: FDA-Public Use
  Company Number: US-ASTRAZENECA-2015SE42294

PATIENT
  Sex: Female
  Weight: 107.5 kg

DRUGS (3)
  1. ALLERGY MEDICATIONS [Concomitant]
     Active Substance: UNSPECIFIED INGREDIENT
  2. PULMICORT FLEXHALER [Suspect]
     Active Substance: BUDESONIDE
     Indication: ASTHMA
     Dosage: 90MCG, 2 INHALATIONS, TWICE A DAY
     Route: 055
     Dates: start: 2015
  3. PRENATAL MEDICATIONS [Concomitant]

REACTIONS (4)
  - Drug dispensing error [Unknown]
  - Wheezing [Unknown]
  - Expired product administered [Unknown]
  - Exposure during pregnancy [Unknown]

NARRATIVE: CASE EVENT DATE: 201504
